FAERS Safety Report 12163092 (Version 1)
Quarter: 2016Q1

REPORT INFORMATION
  Report Type: Spontaneous
  Country: US (occurrence: US)
  Receive Date: 20160309
  Receipt Date: 20160309
  Transmission Date: 20160526
  Serious: No
  Sender: FDA-Public Use
  Company Number: US-ROCHE-1356887

PATIENT
  Sex: Female
  Weight: 65.83 kg

DRUGS (7)
  1. FLONASE (UNITED STATES) [Concomitant]
     Indication: RHINITIS ALLERGIC
     Route: 045
     Dates: start: 20100824, end: 20130905
  2. XOLAIR [Suspect]
     Active Substance: OMALIZUMAB
     Indication: ASTHMA
     Route: 058
     Dates: start: 20091120, end: 20120517
  3. SINGULAIR [Concomitant]
     Active Substance: MONTELUKAST SODIUM
     Indication: ASTHMA
     Dosage: 5-10 MG
     Route: 048
     Dates: start: 20100813, end: 20120803
  4. XOLAIR [Suspect]
     Active Substance: OMALIZUMAB
     Route: 058
     Dates: start: 20131210
  5. ADVAIR HFA [Concomitant]
     Active Substance: FLUTICASONE PROPIONATE\SALMETEROL XINAFOATE
     Indication: ASTHMA
     Dosage: DOSE 115/21 UNIT NOT REPORTED
     Route: 065
     Dates: start: 20100813
  6. ADVAIR HFA [Concomitant]
     Active Substance: FLUTICASONE PROPIONATE\SALMETEROL XINAFOATE
     Dosage: DOSE 5-10 MG
     Route: 048
     Dates: start: 20100813
  7. ASTEPRO [Concomitant]
     Active Substance: AZELASTINE HYDROCHLORIDE
     Indication: RHINITIS ALLERGIC
     Route: 045
     Dates: start: 20130905

REACTIONS (2)
  - Abnormal behaviour [Recovering/Resolving]
  - Maternal exposure during pregnancy [Unknown]
